FAERS Safety Report 5422697-X (Version None)
Quarter: 2007Q3

REPORT INFORMATION
  Report Type: 
  Country: None (occurrence: None)
  Receive Date: 20070820
  Receipt Date: 20070816
  Transmission Date: 20080115
  Serious: Yes (Hospitalization)
  Sender: FDA-Public Use
  Company Number: 1-15221202 /MDE-07177

PATIENT
  Sex: Female

DRUGS (2)
  1. METRONIDAZOLE [Suspect]
     Indication: URINARY TRACT INFECTION
     Dosage: ORAL
     Route: 048
  2. SULFAMETHOXAZOLE TRIMETHOPRIM [Suspect]
     Indication: URINARY TRACT INFECTION
     Dosage: ORAL
     Route: 048

REACTIONS (13)
  - ABASIA [None]
  - AUTONOMIC NEUROPATHY [None]
  - COMPLEX REGIONAL PAIN SYNDROME [None]
  - DIARRHOEA [None]
  - DRUG TOXICITY [None]
  - ERYTHEMA [None]
  - FEELING OF BODY TEMPERATURE CHANGE [None]
  - MOUTH ULCERATION [None]
  - PALLANAESTHESIA [None]
  - PITTING OEDEMA [None]
  - RASH GENERALISED [None]
  - SENSORIMOTOR DISORDER [None]
  - TYPE III IMMUNE COMPLEX MEDIATED REACTION [None]
